FAERS Safety Report 21599276 (Version 1)
Quarter: 2022Q4

REPORT INFORMATION
  Report Type: Spontaneous
  Country: US (occurrence: None)
  Receive Date: 20221114
  Receipt Date: 20221114
  Transmission Date: 20230113
  Serious: No
  Sender: FDA-Public Use
  Company Number: None

PATIENT
  Age: 70 Year
  Sex: Female

DRUGS (1)
  1. OPSUMIT [Suspect]
     Active Substance: MACITENTAN
     Indication: Pulmonary hypertension
     Dosage: FREQUENCY : DAILY;?
     Route: 048
     Dates: start: 20181113

REACTIONS (9)
  - Dyspnoea [None]
  - Wheezing [None]
  - Hypoxia [None]
  - Pneumonia [None]
  - Hypervolaemia [None]
  - Pulmonary hypertension [None]
  - Cardiac failure congestive [None]
  - Infection [None]
  - Interstitial lung disease [None]

NARRATIVE: CASE EVENT DATE: 20221106
